FAERS Safety Report 5801437-6 (Version None)
Quarter: 2008Q2

REPORT INFORMATION
  Report Type: 
  Country: None (occurrence: None)
  Receive Date: 20080626
  Receipt Date: 20070918
  Transmission Date: 20081010
  Serious: Yes (Other)
  Sender: FDA-Public Use
  Company Number: 519021

PATIENT
  Sex: Male

DRUGS (2)
  1. XELODA [Suspect]
     Indication: PROSTATE CANCER
     Dosage: 7 DOSE FORM DAILY
     Dates: start: 20060201
  2. CHEMOTHERAPY NOS (ANTINEOPLASTIC AGENT NOS) [Suspect]

REACTIONS (3)
  - ASTHENIA [None]
  - NEOPLASM MALIGNANT [None]
  - RETINAL DISORDER [None]
